FAERS Safety Report 10337206 (Version 1)
Quarter: 2014Q3

REPORT INFORMATION
  Report Type: Spontaneous
  Country: FR (occurrence: FR)
  Receive Date: 20140723
  Receipt Date: 20140723
  Transmission Date: 20150326
  Serious: Yes (Other)
  Sender: FDA-Public Use
  Company Number: FR-GILEAD-2014-0109483

PATIENT
  Age: 51 Year
  Sex: Male

DRUGS (7)
  1. PEGASYS [Suspect]
     Active Substance: PEGINTERFERON ALFA-2A
     Indication: HEPATITIS C
     Dosage: 1 DF, Q1WK
     Route: 058
     Dates: start: 20140226, end: 20140515
  2. PREZISTA [Concomitant]
     Active Substance: DARUNAVIR ETHANOLATE
  3. ISENTRESS [Concomitant]
     Active Substance: RALTEGRAVIR POTASSIUM
  4. TRUVADA [Concomitant]
     Active Substance: EMTRICITABINE\TENOFOVIR DISOPROXIL FUMARATE
  5. NORVIR [Concomitant]
     Active Substance: RITONAVIR
  6. SOVALDI [Suspect]
     Active Substance: SOFOSBUVIR
     Indication: HEPATITIS C
     Dosage: 1 DF, QD
     Route: 048
     Dates: start: 20140226, end: 20140515
  7. COPEGUS [Suspect]
     Active Substance: RIBAVIRIN
     Indication: HEPATITIS C
     Dosage: 600 MG, BID
     Route: 048
     Dates: start: 20140226, end: 20140515

REACTIONS (10)
  - Asthenia [Recovered/Resolved]
  - Nausea [Recovered/Resolved]
  - Weight decreased [Recovered/Resolved]
  - Pruritus [Recovered/Resolved]
  - Thrombocytopenia [Recovering/Resolving]
  - Headache [Recovered/Resolved]
  - Vertigo [Recovered/Resolved]
  - Lymphopenia [Recovering/Resolving]
  - Anaemia [Recovering/Resolving]
  - Neutropenia [Recovering/Resolving]

NARRATIVE: CASE EVENT DATE: 201403
